FAERS Safety Report 6005651-9 (Version None)
Quarter: 2008Q4

REPORT INFORMATION
  Report Type: 
  Country: None (occurrence: None)
  Receive Date: 20081217
  Receipt Date: 20081211
  Transmission Date: 20090506
  Serious: Yes (Other)
  Sender: FDA-Public Use
  Company Number: US-JNJFOC-20081203377

PATIENT
  Sex: Female
  Weight: 54.43 kg

DRUGS (5)
  1. RISPERDAL [Suspect]
     Route: 048
  2. RISPERDAL [Suspect]
     Indication: AUTISM
     Route: 048
  3. RISPERIDONE [Suspect]
     Indication: AUTISM
     Route: 048
  4. KLONOPIN [Concomitant]
     Indication: AUTISM
     Route: 048
  5. ZANTAC [Concomitant]
     Indication: DYSPEPSIA
     Dosage: 15UMG
     Route: 048

REACTIONS (3)
  - ANGER [None]
  - INSOMNIA [None]
  - SELF INJURIOUS BEHAVIOUR [None]
